FAERS Safety Report 13563527 (Version 2)
Quarter: 2017Q3

REPORT INFORMATION
  Report Type: Spontaneous
  Country: PL (occurrence: PL)
  Receive Date: 20170519
  Receipt Date: 20170717
  Transmission Date: 20171127
  Serious: Yes (Hospitalization, Other)
  Sender: FDA-Public Use
  Company Number: PL-PFIZER INC-2017210402

PATIENT
  Age: 38 Year
  Sex: Female

DRUGS (11)
  1. ASAMAX [Suspect]
     Active Substance: MESALAMINE
     Indication: COLITIS ULCERATIVE
  2. SORBIFER DURULES [Suspect]
     Active Substance: FERROUS SULFATE
     Indication: PYODERMA GANGRENOSUM
     Dosage: UNK
     Dates: start: 201504
  3. ENCORTON /00044701/ [Suspect]
     Active Substance: PREDNISONE
     Indication: COLITIS ULCERATIVE
  4. SOLU-MEDROL [Suspect]
     Active Substance: METHYLPREDNISOLONE SODIUM SUCCINATE
     Indication: COLITIS ULCERATIVE
  5. CONTROLOC [Suspect]
     Active Substance: PANTOPRAZOLE SODIUM
     Indication: PYODERMA GANGRENOSUM
     Dosage: UNK
     Dates: start: 201504
  6. ENCORTON /00044701/ [Suspect]
     Active Substance: PREDNISONE
     Indication: PYODERMA GANGRENOSUM
     Dosage: 20 MG, UNK
     Dates: start: 201504
  7. SOLU-MEDROL [Suspect]
     Active Substance: METHYLPREDNISOLONE SODIUM SUCCINATE
     Indication: PYODERMA GANGRENOSUM
     Dosage: UNK
  8. OCTAGAM IMMUNE GLOBULIN (HUMAN) [Suspect]
     Active Substance: HUMAN IMMUNOGLOBULIN G
     Dosage: UNK
  9. CONTROLOC [Suspect]
     Active Substance: PANTOPRAZOLE SODIUM
     Indication: COLITIS ULCERATIVE
  10. ASAMAX [Suspect]
     Active Substance: MESALAMINE
     Indication: PYODERMA GANGRENOSUM
     Dosage: UNK
     Dates: start: 201504
  11. SORBIFER DURULES [Suspect]
     Active Substance: FERROUS SULFATE
     Indication: COLITIS ULCERATIVE

REACTIONS (3)
  - Pyoderma gangrenosum [Recovered/Resolved]
  - Condition aggravated [Recovered/Resolved]
  - Drug ineffective [Recovered/Resolved]
